FAERS Safety Report 14503149 (Version 7)
Quarter: 2020Q1

REPORT INFORMATION
  Report Type: Spontaneous
  Country: US (occurrence: US)
  Receive Date: 20180208
  Receipt Date: 20200323
  Transmission Date: 20200409
  Serious: No
  Sender: FDA-Public Use
  Company Number: US-PFIZER INC-2018052239

PATIENT
  Age: 77 Year
  Sex: Female
  Weight: 62.14 kg

DRUGS (8)
  1. XELJANZ XR [Suspect]
     Active Substance: TOFACITINIB CITRATE
     Indication: RHEUMATOID ARTHRITIS
     Dosage: 11 MG, 1X/DAY
     Route: 048
     Dates: start: 2017
  2. VITAMIN D3 [Concomitant]
     Active Substance: CHOLECALCIFEROL
     Indication: SUPPLEMENTATION THERAPY
     Dosage: 1000 IU, 1X/DAY
     Route: 048
     Dates: start: 2015
  3. HYDROXYCHLOROQUINE [Concomitant]
     Active Substance: HYDROXYCHLOROQUINE
     Indication: RHEUMATOID ARTHRITIS
     Dosage: 200 MG, 1X/DAY
     Route: 048
  4. OMEPRAZOLE. [Concomitant]
     Active Substance: OMEPRAZOLE
     Indication: RHEUMATOID ARTHRITIS
     Dosage: 20 MG, 1X/DAY
     Route: 048
     Dates: start: 201801
  5. CENTRUM SILVER [Concomitant]
     Active Substance: MINERALS\VITAMINS
     Indication: VITAMIN SUPPLEMENTATION
     Dosage: 1 DF, 1X/DAY
  6. PREDNISONE. [Concomitant]
     Active Substance: PREDNISONE
     Indication: RHEUMATOID ARTHRITIS
     Dosage: 5 MG, ALTERNATE DAY (EVERY OTHER DAY)
     Route: 048
  7. XELJANZ XR [Interacting]
     Active Substance: TOFACITINIB CITRATE
     Dosage: UNK
     Dates: start: 2014
  8. FOLIC ACID. [Concomitant]
     Active Substance: FOLIC ACID
     Indication: RHEUMATOID ARTHRITIS
     Dosage: 800 UG, 1X/DAY
     Route: 048
     Dates: start: 2016

REACTIONS (15)
  - Therapeutic product effect incomplete [Unknown]
  - Dry mouth [Not Recovered/Not Resolved]
  - Arthralgia [Unknown]
  - Infection [Unknown]
  - Appetite disorder [Unknown]
  - Musculoskeletal pain [Unknown]
  - Drug interaction [Unknown]
  - Oropharyngeal pain [Unknown]
  - Dyspnoea [Unknown]
  - Malaise [Unknown]
  - Fungal infection [Unknown]
  - Urinary tract infection [Unknown]
  - Sputum increased [Unknown]
  - Temporomandibular joint syndrome [Unknown]
  - Headache [Not Recovered/Not Resolved]

NARRATIVE: CASE EVENT DATE: 201803
